FAERS Safety Report 19484444 (Version 2)
Quarter: 2021Q3

REPORT INFORMATION
  Report Type: Report from Study
  Country: US (occurrence: US)
  Receive Date: 20210701
  Receipt Date: 20210806
  Transmission Date: 20211014
  Serious: No
  Sender: FDA-Public Use
  Company Number: US-009507513-2106USA007873

PATIENT
  Age: 77 Year
  Sex: Female

DRUGS (3)
  1. BELSOMRA [Suspect]
     Active Substance: SUVOREXANT
     Indication: INSOMNIA
     Dosage: 15 MILLIGRAM ONCE NIGHTLY
     Route: 048
     Dates: start: 202012, end: 202106
  2. BELSOMRA [Suspect]
     Active Substance: SUVOREXANT
     Dosage: 10 MILLIGRAM
     Route: 048
  3. BELSOMRA [Suspect]
     Active Substance: SUVOREXANT
     Dosage: 20 MILLIGRAM
     Route: 048

REACTIONS (6)
  - Wrong technique in product usage process [Unknown]
  - Drug ineffective [Unknown]
  - Stress [Unknown]
  - Frustration tolerance decreased [Unknown]
  - Insomnia [Unknown]
  - Headache [Not Recovered/Not Resolved]

NARRATIVE: CASE EVENT DATE: 202012
